FAERS Safety Report 13673476 (Version 1)
Quarter: 2017Q2

REPORT INFORMATION
  Report Type: Report from Study
  Country: AU (occurrence: AU)
  Receive Date: 20170621
  Receipt Date: 20170621
  Transmission Date: 20170830
  Serious: Yes (Death)
  Sender: FDA-Public Use
  Company Number: AU-ROCHE-1952227

PATIENT

DRUGS (2)
  1. ALTEPLASE [Suspect]
     Active Substance: ALTEPLASE
     Indication: PLEURAL INFECTION
     Dosage: 5MG DILUTED WITH 0.9% SODIUM CHLORIDE TO 50 ML ADMINISTERED TWICE DAILY
     Route: 034
  2. DORNASE ALFA [Concomitant]
     Active Substance: DORNASE ALFA
     Dosage: 5 MG DILUTED WITH 0.9% SODIUM CHLORIDE TO 50 ML (5 MG,2 IN 1 D)
     Route: 065

REACTIONS (1)
  - Mesothelioma malignant [Fatal]
